FAERS Safety Report 4708432-9 (Version None)
Quarter: 2005Q3

REPORT INFORMATION
  Report Type: 
  Country: None (occurrence: None)
  Receive Date: 20050706
  Receipt Date: 20050624
  Transmission Date: 20060218
  Serious: Yes (Hospitalization)
  Sender: FDA-Public Use
  Company Number: KII-2005-0017233

PATIENT
  Age: 61 Year
  Sex: Female

DRUGS (8)
  1. OXYCONTIN [Suspect]
     Dosage: ORAL
     Route: 048
  2. ANTIPSYCHOTICS ( ) [Suspect]
     Dosage: ORAL
     Route: 048
  3. SSRI ( ) [Suspect]
     Dosage: ORAL
     Route: 048
  4. CALCIUM CHANNEL BLOCKERS ( ) [Suspect]
     Dosage: ORAL
     Route: 048
  5. BENZODIAZEPINE DERIVATIVES ( ) [Suspect]
     Dosage: ORAL
     Route: 048
  6. AMITRIPTYLINE HCL [Suspect]
     Dosage: ORAL
     Route: 048
  7. ACETAMINOPHEN AND HYDROCODONE BITARTRATE [Suspect]
     Dosage: ORAL
     Route: 048
  8. PHENOTHIAZINE (PHENOTHIAZINE) [Suspect]
     Dosage: ORAL
     Route: 048

REACTIONS (7)
  - BLOOD PRESSURE SYSTOLIC INCREASED [None]
  - CONFUSIONAL STATE [None]
  - ELECTROCARDIOGRAM QT CORRECTED INTERVAL PROLONGED [None]
  - HYPOTENSION [None]
  - OVERDOSE [None]
  - SINUS BRADYCARDIA [None]
  - SOMNOLENCE [None]
